FAERS Safety Report 8048435-2 (Version None)
Quarter: 2012Q1

REPORT INFORMATION
  Report Type: 
  Country: None (occurrence: None)
  Receive Date: 20120117
  Receipt Date: 20120111
  Transmission Date: 20120608
  Serious: No
  Sender: FDA-Public Use
  Company Number: US-PFIZER INC-2012008941

PATIENT
  Sex: Female
  Weight: 77.551 kg

DRUGS (10)
  1. CALCIUM [Concomitant]
     Dosage: UNK
  2. HYDROCODONE [Concomitant]
     Indication: PAIN
     Dosage: UNK
  3. LYRICA [Suspect]
     Indication: NEUROPATHY PERIPHERAL
     Dosage: 50 MG, 3X/DAY
     Route: 048
     Dates: start: 20110101
  4. FUROSEMIDE [Concomitant]
     Dosage: UNK
  5. NIACIN [Concomitant]
     Indication: BLOOD CHOLESTEROL INCREASED
     Dosage: 500 MG, FREQUENCY UNKNOWN
  6. VITAMIN TAB [Concomitant]
     Dosage: UNKNOWN
  7. LYRICA [Suspect]
     Indication: MYALGIA
  8. LYRICA [Suspect]
     Indication: ARTHRALGIA
  9. LISINOPRIL [Concomitant]
     Indication: HYPERTENSION
     Dosage: UNK
  10. AMLODIPINE [Concomitant]
     Indication: HYPERTENSION
     Dosage: UNK

REACTIONS (1)
  - DIARRHOEA [None]
